FAERS Safety Report 5535474-6 (Version None)
Quarter: 2007Q4

REPORT INFORMATION
  Report Type: 
  Country: None (occurrence: None)
  Receive Date: 20071206
  Receipt Date: 20071128
  Transmission Date: 20080405
  Serious: Yes (Other)
  Sender: FDA-Public Use
  Company Number: US-ROCHE-530088

PATIENT
  Age: 83 Year
  Sex: Female

DRUGS (6)
  1. XELODA [Suspect]
     Indication: BREAST CANCER
     Route: 048
     Dates: start: 20071006
  2. TYKERB [Suspect]
     Indication: BREAST CANCER
     Route: 048
     Dates: start: 20071006
  3. PINDOLOL [Concomitant]
  4. DIOVAN [Concomitant]
  5. INDAPAMIDE [Concomitant]
  6. FOSAMAX [Concomitant]

REACTIONS (7)
  - DEHYDRATION [None]
  - DEPRESSION [None]
  - DIARRHOEA [None]
  - FATIGUE [None]
  - HYPOTENSION [None]
  - NAUSEA [None]
  - ORAL INTAKE REDUCED [None]
